FAERS Safety Report 7702449-8 (Version None)
Quarter: 2011Q3

REPORT INFORMATION
  Report Type: 
  Country: None (occurrence: None)
  Receive Date: 20110823
  Receipt Date: 20110815
  Transmission Date: 20111222
  Serious: Yes (Death, Hospitalization)
  Sender: FDA-Public Use
  Company Number: IE-BRISTOL-MYERS SQUIBB COMPANY-15947039

PATIENT
  Age: 52 Year
  Sex: Female

DRUGS (6)
  1. SOLPADOL [Concomitant]
     Dosage: 1DF: 2TABLETS. 3 TIMES A DAY.
     Route: 048
  2. FOLIC ACID [Concomitant]
     Route: 048
  3. OMEPRAZOLE [Concomitant]
     Route: 048
  4. ARAVA [Concomitant]
  5. ORENCIA [Suspect]
     Indication: RHEUMATOID ARTHRITIS
     Dosage: ORENCIA 250MG.
     Route: 042
     Dates: start: 20110728
  6. MELOXICAM [Concomitant]

REACTIONS (2)
  - HYPERTENSION [None]
  - MYOCARDIAL INFARCTION [None]
